FAERS Safety Report 8449929-8 (Version None)
Quarter: 2012Q2

REPORT INFORMATION
  Report Type: 
  Country: None (occurrence: None)
  Receive Date: 20120620
  Receipt Date: 20120613
  Transmission Date: 20120825
  Serious: Yes (Hospitalization, Other)
  Sender: FDA-Public Use
  Company Number: PHHY2012BR051276

PATIENT
  Sex: Female

DRUGS (2)
  1. FORMOTEROL FUMARATE [Suspect]
     Indication: EMPHYSEMA
  2. FORMOTEROL FUMARATE [Suspect]
     Indication: CHRONIC OBSTRUCTIVE PULMONARY DISEASE
     Dosage: 1 DF, QD

REACTIONS (2)
  - PNEUMONIA [None]
  - CONDITION AGGRAVATED [None]
